FAERS Safety Report 10433116 (Version 1)
Quarter: 2014Q3

REPORT INFORMATION
  Report Type: Spontaneous
  Country: US (occurrence: None)
  Receive Date: 20140815
  Receipt Date: 20140815
  Transmission Date: 20150326
  Serious: No
  Sender: FDA-Public Use
  Company Number: A-US2014-98088

PATIENT
  Age: 50 Year
  Sex: Female

DRUGS (12)
  1. NORCO (HYDROCODONE BITARTRATE, PARACETAMOL) [Concomitant]
  2. TOPIRAMATE. [Concomitant]
     Active Substance: TOPIRAMATE
  3. LASIX [Concomitant]
     Active Substance: FUROSEMIDE
  4. DIOVAN [Concomitant]
     Active Substance: VALSARTAN
  5. OPSUMIT [Suspect]
     Active Substance: MACITENTAN
     Indication: PULMONARY HYPERTENSION
     Route: 048
     Dates: start: 20140327
  6. REGLAN (METOCLOPRAMIDE HYDROCHLORIDE) [Concomitant]
  7. SIMVASTATIN. [Concomitant]
     Active Substance: SIMVASTATIN
  8. CYMBALTA [Concomitant]
     Active Substance: DULOXETINE HYDROCHLORIDE
  9. WELLBUTRIN [Concomitant]
     Active Substance: BUPROPION HYDROCHLORIDE
  10. TRICOR [Concomitant]
     Active Substance: FENOFIBRATE
  11. CIPRO (CIPROFLOXACIN LACTATE) [Concomitant]
     Active Substance: CIPROFLOXACIN LACTATE
  12. POTASSIUM [Concomitant]
     Active Substance: POTASSIUM

REACTIONS (3)
  - Incontinence [None]
  - Local swelling [None]
  - Oedema peripheral [None]

NARRATIVE: CASE EVENT DATE: 20140327
